FAERS Safety Report 7998467 (Version 3)
Quarter: 2014Q4

REPORT INFORMATION
  Report Type: Spontaneous
  Country: JP (occurrence: JP)
  Receive Date: 20110224
  Receipt Date: 20141208
  Transmission Date: 20150529
  Serious: Yes (Hospitalization, Other)
  Sender: FDA-Public Use
  Company Number: PHHY2010JP76529

PATIENT
  Age: 70 Year
  Sex: Male

DRUGS (8)
  1. DEPAS [Concomitant]
     Active Substance: ETIZOLAM
     Indication: PRODUCT USED FOR UNKNOWN INDICATION
     Dosage: 1 MG, QD
     Route: 048
     Dates: start: 2003
  2. EQUA [Suspect]
     Active Substance: VILDAGLIPTIN
     Indication: TYPE 2 DIABETES MELLITUS
     Dosage: UNK
     Route: 048
     Dates: start: 20100721, end: 20101012
  3. MEDIPEACE [Concomitant]
     Active Substance: ETIZOLAM
     Indication: ANXIETY DISORDER
     Dosage: 1 MG, QD
     Route: 048
     Dates: start: 20041213, end: 20101012
  4. URSO [Concomitant]
     Active Substance: URSODIOL
     Indication: ALCOHOLIC LIVER DISEASE
     Dosage: 600 MG, QD
     Route: 048
     Dates: start: 20061204, end: 20101012
  5. BETAMAC [Concomitant]
     Active Substance: SULPIRIDE
     Indication: ANXIETY DISORDER
     Dosage: 100 MG, QD
     Route: 048
     Dates: start: 20041213, end: 20101012
  6. AMARYL [Concomitant]
     Active Substance: GLIMEPIRIDE
     Indication: TYPE 2 DIABETES MELLITUS
     Dosage: 6 MG, QD
     Route: 048
     Dates: start: 20030415
  7. EXFORGE [Suspect]
     Active Substance: AMLODIPINE BESYLATE\VALSARTAN
     Indication: HYPERTENSION
     Dosage: UNK
     Route: 048
     Dates: start: 20100825, end: 20101006
  8. UNISIA [Suspect]
     Active Substance: AMLODIPINE BESYLATE\CANDESARTAN CILEXETIL
     Indication: HYPERTENSION
     Dosage: UNK
     Route: 048
     Dates: start: 20101006, end: 20101012

REACTIONS (11)
  - Blood glucose increased [Unknown]
  - Fall [Unknown]
  - Hepatic function abnormal [Recovered/Resolved]
  - Blood sodium decreased [Unknown]
  - Myalgia [Recovering/Resolving]
  - Pain [Unknown]
  - Hypoglycaemia [Unknown]
  - Rhabdomyolysis [Recovered/Resolved]
  - Asthenia [Recovering/Resolving]
  - Gait disturbance [Recovering/Resolving]
  - Hypotension [Recovered/Resolved]

NARRATIVE: CASE EVENT DATE: 20100908
